FAERS Safety Report 11737740 (Version 7)
Quarter: 2016Q2

REPORT INFORMATION
  Report Type: Spontaneous
  Country: US (occurrence: US)
  Receive Date: 20151113
  Receipt Date: 20160523
  Transmission Date: 20160815
  Serious: Yes (Other)
  Sender: FDA-Public Use
  Company Number: US-MDT-ADR-2015-02150

PATIENT
  Age: 56 Year
  Sex: Female

DRUGS (23)
  1. COMPOUNDED BACLOFEN [Suspect]
     Active Substance: BACLOFEN
     Route: 037
  2. ALBUTEROL. [Suspect]
     Active Substance: ALBUTEROL
  3. DILAUDID [Suspect]
     Active Substance: HYDROMORPHONE HYDROCHLORIDE
     Dosage: 1.997MG/DAY
     Route: 037
     Dates: start: 200102
  4. BACLOFEN. [Suspect]
     Active Substance: BACLOFEN
     Dosage: 2.888 MG/DAY
     Dates: start: 20150112, end: 20150824
  5. BACLOFEN. [Suspect]
     Active Substance: BACLOFEN
     Dosage: 1.998 MG/DAY
     Dates: start: 20151104
  6. DILAUDID [Suspect]
     Active Substance: HYDROMORPHONE HYDROCHLORIDE
     Route: 037
     Dates: start: 20150824
  7. AMITRYPTYLINE [Suspect]
     Active Substance: AMITRIPTYLINE
  8. HYDROMORPHONE [Suspect]
     Active Substance: HYDROMORPHONE
     Dosage: 2.888 MG/DAY
  9. NORCO [Suspect]
     Active Substance: ACETAMINOPHEN\HYDROCODONE BITARTRATE
  10. NORCO [Suspect]
     Active Substance: ACETAMINOPHEN\HYDROCODONE BITARTRATE
     Dosage: 10/325
  11. COMPOUNDED BACLOFEN [Suspect]
     Active Substance: BACLOFEN
     Route: 037
     Dates: start: 20150824
  12. XANAX [Suspect]
     Active Substance: ALPRAZOLAM
  13. PHAZYNE [Suspect]
     Active Substance: UNSPECIFIED INGREDIENT
  14. BACLOFEN. [Suspect]
     Active Substance: BACLOFEN
     Dosage: 2.58 MG/DAY
     Dates: start: 20150824, end: 20151104
  15. MELOXICAM. [Suspect]
     Active Substance: MELOXICAM
  16. HYDROMORPHONE [Suspect]
     Active Substance: HYDROMORPHONE
     Dosage: 1.998 MG/DAY
  17. PROZAC [Suspect]
     Active Substance: FLUOXETINE HYDROCHLORIDE
  18. HYDROMORPHONE [Suspect]
     Active Substance: HYDROMORPHONE
     Dosage: 2.58 MG/DAY
  19. DILAUDID [Suspect]
     Active Substance: HYDROMORPHONE HYDROCHLORIDE
     Dosage: 2.888MG/DAY
     Route: 037
     Dates: start: 20150112
  20. COMPOUNDED BACLOFEN [Suspect]
     Active Substance: BACLOFEN
     Route: 037
     Dates: start: 200102
  21. COMPAZINE [Suspect]
     Active Substance: PROCHLORPERAZINE MALEATE
  22. TOPAMAX [Suspect]
     Active Substance: TOPIRAMATE
  23. PROTONIX [Suspect]
     Active Substance: PANTOPRAZOLE SODIUM

REACTIONS (14)
  - Therapeutic response increased [Unknown]
  - Somnolence [Unknown]
  - Memory impairment [Unknown]
  - Dizziness [Unknown]
  - Lethargy [Unknown]
  - Feeling abnormal [Unknown]
  - Fall [Unknown]
  - Nausea [Unknown]
  - Infusion site mass [Unknown]
  - Overdose [Unknown]
  - Road traffic accident [Unknown]
  - Altered state of consciousness [Unknown]
  - Unevaluable event [Unknown]
  - Pain [Unknown]

NARRATIVE: CASE EVENT DATE: 2015
